FAERS Safety Report 13616522 (Version 3)
Quarter: 2019Q4

REPORT INFORMATION
  Report Type: Spontaneous
  Country: US (occurrence: US)
  Receive Date: 20170606
  Receipt Date: 20191015
  Transmission Date: 20200122
  Serious: No
  Sender: FDA-Public Use
  Company Number: US-SA-2016SA086439

PATIENT
  Age: 73 Year
  Sex: Male
  Weight: 62.59 kg

DRUGS (11)
  1. LANTUS SOLOSTAR [Suspect]
     Active Substance: INSULIN GLARGINE
     Dosage: 28 U, QD
  2. NOVOLOG [Concomitant]
     Active Substance: INSULIN ASPART
     Dosage: UNK UNK,TID
  3. LANTUS SOLOSTAR [Suspect]
     Active Substance: INSULIN GLARGINE
     Dosage: 38 DF,HS
     Route: 065
  4. LANTUS SOLOSTAR [Suspect]
     Active Substance: INSULIN GLARGINE
     Dosage: 20 U, QD
  5. LANTUS SOLOSTAR [Suspect]
     Active Substance: INSULIN GLARGINE
     Indication: TYPE 2 DIABETES MELLITUS
     Dosage: 68 DF,QD
     Route: 065
  6. SOLOSTAR [Suspect]
     Active Substance: DEVICE
  7. LANTUS SOLOSTAR [Suspect]
     Active Substance: INSULIN GLARGINE
     Dosage: 38 DF,HS
     Route: 065
  8. LANTUS SOLOSTAR [Suspect]
     Active Substance: INSULIN GLARGINE
     Dosage: 68 DF,QD
     Route: 065
  9. SOLOSTAR [Suspect]
     Active Substance: DEVICE
  10. SOLOSTAR [Suspect]
     Active Substance: DEVICE
     Indication: TYPE 2 DIABETES MELLITUS
  11. SOLOSTAR [Suspect]
     Active Substance: DEVICE

REACTIONS (7)
  - Blood glucose increased [Unknown]
  - Product use issue [Unknown]
  - Intentional product use issue [Unknown]
  - Lacrimation increased [Unknown]
  - Blood glucose abnormal [Recovering/Resolving]
  - Wrong technique in device usage process [Unknown]
  - Dry eye [Unknown]

NARRATIVE: CASE EVENT DATE: 20160428
